FAERS Safety Report 9134011 (Version 1)
Quarter: 2013Q1

REPORT INFORMATION
  Report Type: Spontaneous
  Country: US (occurrence: None)
  Receive Date: 20130226
  Receipt Date: 20130226
  Transmission Date: 20140127
  Serious: Yes (Death, Life-Threatening, Hospitalization, Other)
  Sender: FDA-Public Use
  Company Number: None

PATIENT
  Age: 26 Year
  Sex: Male
  Weight: 53.52 kg

DRUGS (1)
  1. VICODIN [Suspect]
     Indication: NEPHROLITHIASIS
     Dosage: 3000  MG   PO BID   PO?02/20/2013   --   02/20/2013
     Route: 048
     Dates: start: 20130220, end: 20130220

REACTIONS (5)
  - Anaphylactic reaction [None]
  - Hypopnoea [None]
  - Heart rate decreased [None]
  - Grand mal convulsion [None]
  - Hypoxia [None]
